FAERS Safety Report 7701988-3 (Version None)
Quarter: 2011Q3

REPORT INFORMATION
  Report Type: 
  Country: None (occurrence: None)
  Receive Date: 20110822
  Receipt Date: 20110811
  Transmission Date: 20111222
  Serious: Yes (Other)
  Sender: FDA-Public Use
  Company Number: PHHY2011NL72865

PATIENT
  Sex: Male

DRUGS (2)
  1. ZOMETA [Suspect]
     Dosage: 4MG/5ML
     Route: 042
     Dates: end: 20110726
  2. ZOMETA [Suspect]
     Indication: PROSTATE CANCER
     Dosage: 4MG/5ML
     Route: 042
     Dates: start: 20080418

REACTIONS (1)
  - GENERAL PHYSICAL HEALTH DETERIORATION [None]
